FAERS Safety Report 25138805 (Version 1)
Quarter: 2025Q1

REPORT INFORMATION
  Report Type: Spontaneous
  Country: US (occurrence: US)
  Receive Date: 20250331
  Receipt Date: 20250331
  Transmission Date: 20250408
  Serious: No
  Sender: ROCHE
  Company Number: US-ROCHE-10000239844

PATIENT
  Weight: 74.84 kg

DRUGS (1)
  1. HEMLIBRA [Suspect]
     Active Substance: EMICIZUMAB-KXWH
     Indication: Haemophilia
     Dosage: 105 MG AND 12 MG DOSES.
     Route: 065

REACTIONS (2)
  - Product administration error [Unknown]
  - No adverse event [Unknown]
